FAERS Safety Report 7513798-0 (Version None)
Quarter: 2011Q2

REPORT INFORMATION
  Report Type: 
  Country: None (occurrence: None)
  Receive Date: 20110531
  Receipt Date: 20110524
  Transmission Date: 20111010
  Serious: Yes (Other)
  Sender: FDA-Public Use
  Company Number: PHHY2011GB45647

PATIENT
  Age: 52 Year
  Sex: Male

DRUGS (4)
  1. PREDNISOLONE [Suspect]
     Dosage: UNK
  2. TACROLIMUS [Suspect]
     Dosage: UNK
  3. MYCOPHENOLATE MEFETIL [Suspect]
     Dosage: UNK
  4. COTRIM [Suspect]
     Indication: PNEUMOCYSTIS JIROVECI PNEUMONIA
     Dosage: 4320 MG, BID
     Route: 042

REACTIONS (8)
  - PSYCHOTIC DISORDER [None]
  - RESTLESSNESS [None]
  - MUSCLE TWITCHING [None]
  - PNEUMOCYSTIS JIROVECI PNEUMONIA [None]
  - DYSPNOEA [None]
  - DELUSION [None]
  - MORBID THOUGHTS [None]
  - TEARFULNESS [None]
